FAERS Safety Report 10069063 (Version 2)
Quarter: 2014Q2

REPORT INFORMATION
  Report Type: Spontaneous
  Country: JP (occurrence: JP)
  Receive Date: 20140409
  Receipt Date: 20140416
  Transmission Date: 20141212
  Serious: Yes (Other)
  Sender: FDA-Public Use
  Company Number: PHHY2014JP041706

PATIENT
  Age: 22 Year
  Sex: Female
  Weight: 47 kg

DRUGS (6)
  1. DOXORUBICIN [Suspect]
     Indication: CHEMOTHERAPY
  2. VINCRISTINE SULFATE [Suspect]
     Indication: CHEMOTHERAPY
  3. PREDNISOLONE [Suspect]
     Indication: CHEMOTHERAPY
  4. CYCLOPHOSPHAMIDE [Suspect]
     Indication: CHEMOTHERAPY
  5. ITRACONAZOLE [Concomitant]
     Indication: ANTIFUNGAL PROPHYLAXIS
  6. L-ASPARAGINASE [Concomitant]
     Indication: ACUTE LYMPHOCYTIC LEUKAEMIA

REACTIONS (7)
  - Posterior reversible encephalopathy syndrome [Recovered/Resolved]
  - Visual impairment [Recovered/Resolved]
  - Headache [Recovered/Resolved]
  - Nausea [Recovered/Resolved]
  - Febrile neutropenia [Unknown]
  - Ileus paralytic [Recovered/Resolved]
  - Abdominal pain [Recovered/Resolved]
